FAERS Safety Report 5955253-5 (Version None)
Quarter: 2008Q4

REPORT INFORMATION
  Report Type: 
  Country: None (occurrence: None)
  Receive Date: 20081117
  Receipt Date: 20081112
  Transmission Date: 20090506
  Serious: Yes (Death, Other)
  Sender: FDA-Public Use
  Company Number: JP-BRISTOL-MYERS SQUIBB COMPANY-14404867

PATIENT
  Age: 4 Year
  Sex: Female

DRUGS (3)
  1. VEPESID [Suspect]
     Indication: NEUROBLASTOMA RECURRENT
     Route: 041
  2. PARAPLATIN [Suspect]
     Indication: NEUROBLASTOMA RECURRENT
     Route: 041
  3. MELPHALAN [Suspect]
     Indication: NEUROBLASTOMA RECURRENT
     Route: 042

REACTIONS (5)
  - CARDIAC FAILURE [None]
  - HAEMOLYTIC URAEMIC SYNDROME [None]
  - INFECTION [None]
  - MALIGNANT NEOPLASM PROGRESSION [None]
  - MULTI-ORGAN FAILURE [None]
